FAERS Safety Report 9143419 (Version 1)
Quarter: 2013Q1

REPORT INFORMATION
  Report Type: Spontaneous
  Country: US (occurrence: US)
  Receive Date: 20130306
  Receipt Date: 20130306
  Transmission Date: 20140127
  Serious: No
  Sender: FDA-Public Use
  Company Number: US-ENDO PHARMACEUTICALS INC.-OPER20120479

PATIENT
  Sex: Male
  Weight: 83.99 kg

DRUGS (2)
  1. OPANA [Suspect]
     Indication: INTERVERTEBRAL DISC PROTRUSION
     Route: 048
     Dates: start: 2012, end: 20120331
  2. OPANA ER [Concomitant]
     Indication: INTERVERTEBRAL DISC PROTRUSION
     Route: 048
     Dates: start: 2012, end: 2012

REACTIONS (1)
  - Withdrawal syndrome [Unknown]
